FAERS Safety Report 7420976-8 (Version None)
Quarter: 2011Q2

REPORT INFORMATION
  Report Type: 
  Country: None (occurrence: None)
  Receive Date: 20110408
  Receipt Date: 20110323
  Transmission Date: 20111010
  Serious: Yes (Death)
  Sender: FDA-Public Use
  Company Number: 867861

PATIENT
  Age: 62 Year
  Sex: Male

DRUGS (1)
  1. EPINEPHRINE [Suspect]
     Indication: CARDIAC ARREST
     Dosage: NOT REPORTED
     Dates: start: 20110310, end: 20110310

REACTIONS (2)
  - DISEASE PROGRESSION [None]
  - MEDICAL DEVICE COMPLICATION [None]
